FAERS Safety Report 19148233 (Version 1)
Quarter: 2021Q2

REPORT INFORMATION
  Report Type: Spontaneous
  Country: FR (occurrence: FR)
  Receive Date: 20210416
  Receipt Date: 20210416
  Transmission Date: 20210717
  Serious: Yes (Life-Threatening, Hospitalization)
  Sender: FDA-Public Use
  Company Number: FR-ASTRAZENECA-2021A301615

PATIENT
  Age: 79 Year
  Sex: Male
  Weight: 58 kg

DRUGS (1)
  1. DURVALUMAB. [Suspect]
     Active Substance: DURVALUMAB
     Indication: SQUAMOUS CELL CARCINOMA OF LUNG
     Route: 041
     Dates: start: 20201231, end: 20210114

REACTIONS (1)
  - Pneumonitis chemical [Not Recovered/Not Resolved]

NARRATIVE: CASE EVENT DATE: 20210114
